FAERS Safety Report 8122109-1 (Version None)
Quarter: 2012Q1

REPORT INFORMATION
  Report Type: 
  Country: None (occurrence: None)
  Receive Date: 20120207
  Receipt Date: 20120207
  Transmission Date: 20120608
  Serious: Yes (Other)
  Sender: FDA-Public Use
  Company Number: None

PATIENT
  Sex: Female
  Weight: 76.2043 kg

DRUGS (4)
  1. FLUVASTATIN [Suspect]
     Indication: HYPERLIPIDAEMIA
     Dosage: 40 MG ONCE A DAY ORALLY
     Route: 048
     Dates: start: 20110913
  2. FLUVASTATIN [Suspect]
     Indication: TYPE 2 DIABETES MELLITUS
     Dosage: 40 MG ONCE A DAY ORALLY
     Route: 048
     Dates: start: 20110913
  3. FLUVASTATIN [Suspect]
     Indication: HYPERLIPIDAEMIA
     Dosage: 40 MG ONCE A DAY ORALLY
     Route: 048
     Dates: start: 20111028
  4. FLUVASTATIN [Suspect]
     Indication: TYPE 2 DIABETES MELLITUS
     Dosage: 40 MG ONCE A DAY ORALLY
     Route: 048
     Dates: start: 20111028

REACTIONS (4)
  - LIVER FUNCTION TEST ABNORMAL [None]
  - FATIGUE [None]
  - MYALGIA [None]
  - ABDOMINAL DISTENSION [None]
